FAERS Safety Report 11185248 (Version 1)
Quarter: 2015Q2

REPORT INFORMATION
  Report Type: Spontaneous
  Country: US (occurrence: US)
  Receive Date: 20150612
  Receipt Date: 20150612
  Transmission Date: 20150821
  Serious: No
  Sender: FDA-Public Use
  Company Number: US-DSJP-DSU-2014-115550

PATIENT
  Age: 64 Year
  Sex: Female
  Weight: 83.9 kg

DRUGS (2)
  1. BENICAR [Suspect]
     Active Substance: OLMESARTAN MEDOXOMIL
     Indication: HYPERTENSION
     Dosage: 1/2 TABLET OF 40 MG, QD
     Route: 048
     Dates: start: 20140716, end: 20140718
  2. TRY-ATH-A-EINE [Concomitant]
     Indication: ABDOMINAL DISTENSION
     Dosage: 1/2 TABLET, AS NEEDED

REACTIONS (4)
  - Drug prescribing error [Unknown]
  - Malaise [Unknown]
  - Headache [Unknown]
  - Abdominal distension [Unknown]

NARRATIVE: CASE EVENT DATE: 201407
